FAERS Safety Report 15385466 (Version 3)
Quarter: 2018Q3

REPORT INFORMATION
  Report Type: Spontaneous
  Country: US (occurrence: US)
  Receive Date: 20180914
  Receipt Date: 20180918
  Transmission Date: 20181010
  Serious: Yes (Hospitalization)
  Sender: FDA-Public Use
  Company Number: US-ALKERMES INC.-ALK-2018-004871

PATIENT
  Age: 69 Year
  Sex: Female

DRUGS (1)
  1. VIVITROL [Suspect]
     Active Substance: NALTREXONE
     Indication: DRUG DEPENDENCE
     Dosage: 380 MG, QMO
     Route: 030
     Dates: start: 20180601

REACTIONS (7)
  - Injection site mass [Recovered/Resolved]
  - Alcohol use [Recovered/Resolved]
  - Pneumonia [Recovered/Resolved]
  - Drug dose omission [Unknown]
  - Alcohol poisoning [Recovered/Resolved]
  - Injection site reaction [Recovered/Resolved]
  - Dyspnoea [Recovered/Resolved]

NARRATIVE: CASE EVENT DATE: 2018
